FAERS Safety Report 19880684 (Version 1)
Quarter: 2021Q3

REPORT INFORMATION
  Report Type: Spontaneous
  Country: NL (occurrence: NL)
  Receive Date: 20210924
  Receipt Date: 20210924
  Transmission Date: 20211014
  Serious: Yes (Hospitalization, Other)
  Sender: FDA-Public Use
  Company Number: NL-INDIVIOR US-INDV-131169-2021

PATIENT

DRUGS (3)
  1. TRAMADOL. [Suspect]
     Active Substance: TRAMADOL
     Indication: ABDOMINAL PAIN UPPER
     Dosage: (3 X DAILY)
     Route: 063
  2. MECLIZINE [Suspect]
     Active Substance: MECLIZINE HYDROCHLORIDE
     Indication: PRURITUS
     Dosage: 2 X DAILY
     Route: 063
     Dates: start: 20210902, end: 20210904
  3. BUPRENORPHINE [BUPRENORPHINE HYDROCHLORIDE] [Suspect]
     Active Substance: BUPRENORPHINE HYDROCHLORIDE
     Indication: ABDOMINAL PAIN UPPER
     Dosage: IF NECESSARY 8 X DAILY
     Route: 063
     Dates: start: 20210901, end: 20210904

REACTIONS (4)
  - Somnolence neonatal [Unknown]
  - Infantile apnoea [Unknown]
  - Oxygen saturation decreased [Unknown]
  - Exposure via breast milk [Recovered/Resolved]

NARRATIVE: CASE EVENT DATE: 202109
